FAERS Safety Report 5078062-0 (Version None)
Quarter: 2006Q3

REPORT INFORMATION
  Report Type: 
  Country: None (occurrence: None)
  Receive Date: 20060808
  Receipt Date: 20060801
  Transmission Date: 20061208
  Serious: Yes (Hospitalization)
  Sender: FDA-Public Use
  Company Number: 2006094560

PATIENT
  Age: 85 Year
  Sex: Male

DRUGS (6)
  1. TAHOR (ATORVASTATIN) [Suspect]
     Indication: DRUG USE FOR UNKNOWN INDICATION
     Dosage: 1 DOSE FORM (1 IN 1 D), ORAL
     Route: 048
     Dates: end: 20060211
  2. FLUINDIONE (FLUINDIONE) [Suspect]
     Indication: DRUG USE FOR UNKNOWN INDICATION
     Dosage: 5 MG (1 IN 1 D), ORAL
     Route: 048
     Dates: end: 20060211
  3. BISOPROLOL FUMARATE [Concomitant]
  4. FUROSEMIDE [Concomitant]
  5. POTASSIUM CHLORIDE [Concomitant]
  6. PROPYLTHIOURACIL [Concomitant]

REACTIONS (6)
  - ANOREXIA [None]
  - GASTROINTESTINAL HAEMORRHAGE [None]
  - HAEMATEMESIS [None]
  - HIATUS HERNIA [None]
  - OESOPHAGITIS ULCERATIVE [None]
  - RECTAL HAEMORRHAGE [None]
